FAERS Safety Report 4520693-8 (Version None)
Quarter: 2004Q4

REPORT INFORMATION
  Report Type: 
  Country: None (occurrence: None)
  Receive Date: 20041203
  Receipt Date: 20041119
  Transmission Date: 20050328
  Serious: Yes (Hospitalization)
  Sender: FDA-Public Use
  Company Number: 105486ISR

PATIENT
  Age: 47 Year
  Sex: Female

DRUGS (3)
  1. FLUOROURACIL [Suspect]
     Dosage: 860 MILLGRAM, INTRAVENOUS NOS
     Route: 042
     Dates: start: 20000522
  2. EPIRUBICIN [Suspect]
     Dosage: 170 MILLIGRAM, INTRAVENOUS NOS
     Route: 042
     Dates: start: 20000522
  3. CYCLOPHOSPHAMIDE [Suspect]
     Dosage: 860 MILLIGRAM, INTRAVENOUS NOS
     Route: 042
     Dates: start: 20000522

REACTIONS (2)
  - ASTHENIA [None]
  - EJECTION FRACTION DECREASED [None]
